FAERS Safety Report 9223091 (Version 1)
Quarter: 2013Q1

REPORT INFORMATION
  Report Type: Spontaneous
  Country: US (occurrence: None)
  Receive Date: 20120912
  Receipt Date: 20120912
  Transmission Date: 20140127
  Serious: No
  Sender: FDA-Public Use
  Company Number: 2012SP029578

PATIENT
  Age: 70 Year
  Sex: Male

DRUGS (1)
  1. VICTRELIS [Suspect]
     Indication: HEPATITIS C
     Route: 048
     Dates: start: 20120301

REACTIONS (4)
  - Ageusia [None]
  - Eating disorder [None]
  - Dysgeusia [None]
  - Weight decreased [None]
